FAERS Safety Report 5747284-5 (Version None)
Quarter: 2008Q2

REPORT INFORMATION
  Report Type: 
  Country: None (occurrence: None)
  Receive Date: 20080523
  Receipt Date: 20080515
  Transmission Date: 20081010
  Serious: Yes (Hospitalization, Other)
  Sender: FDA-Public Use
  Company Number: FI-JNJFOC-20080502646

PATIENT
  Sex: Male

DRUGS (11)
  1. REMICADE [Suspect]
     Route: 042
  2. REMICADE [Suspect]
     Dosage: 10TH INFUSION
     Route: 042
  3. REMICADE [Suspect]
     Route: 042
  4. REMICADE [Suspect]
     Indication: CROHN'S DISEASE
     Route: 042
  5. AZAMUN [Concomitant]
  6. PENTASA [Concomitant]
  7. PREDNISOLONE [Concomitant]
     Dosage: 40-5 MG EVERY OTHER DAY
  8. RETAFER [Concomitant]
  9. KALSIPOS D [Concomitant]
  10. LACTOBACILLUS [Concomitant]
  11. MULTITABS [Concomitant]

REACTIONS (11)
  - BLOOD PRESSURE DECREASED [None]
  - COLD SWEAT [None]
  - CROHN'S DISEASE [None]
  - DYSPNOEA [None]
  - ERYTHEMA [None]
  - ILEUS [None]
  - INFUSION RELATED REACTION [None]
  - PHARYNGOLARYNGEAL PAIN [None]
  - PYREXIA [None]
  - SKIN WARM [None]
  - VOMITING [None]
